FAERS Safety Report 6329680-0 (Version None)
Quarter: 2009Q3

REPORT INFORMATION
  Report Type: 
  Country: None (occurrence: None)
  Receive Date: 20090824
  Receipt Date: 20090824
  Transmission Date: 20100115
  Serious: No
  Sender: FDA-Public Use
  Company Number: None

PATIENT

DRUGS (1)
  1. GABAPENTIN [Suspect]
     Dosage: 90 CAPSULES
     Dates: start: 20090722, end: 20090726

REACTIONS (4)
  - GAIT DISTURBANCE [None]
  - HEADACHE [None]
  - MALAISE [None]
  - PRODUCT SUBSTITUTION ISSUE [None]
